FAERS Safety Report 8231142-0 (Version None)
Quarter: 2012Q1

REPORT INFORMATION
  Report Type: 
  Country: None (occurrence: None)
  Receive Date: 20120323
  Receipt Date: 20120316
  Transmission Date: 20120608
  Serious: Yes (Disabling, Other)
  Sender: FDA-Public Use
  Company Number: US-PFIZER INC-2012003499

PATIENT
  Sex: Male

DRUGS (9)
  1. PREDNISONE [Concomitant]
  2. TIAZAC [Concomitant]
  3. CLONIDINE [Concomitant]
  4. VIAGRA [Suspect]
     Dosage: 100MG AS NEEDED
  5. ZOCOR [Concomitant]
  6. MYFORTIC [Concomitant]
     Dosage: UNK
  7. ZESTRIL [Concomitant]
  8. NORVASC [Concomitant]
  9. NEORAL [Concomitant]
     Dosage: UNK

REACTIONS (1)
  - RENAL CANCER METASTATIC [None]
